FAERS Safety Report 8235004-4 (Version None)
Quarter: 2012Q1

REPORT INFORMATION
  Report Type: 
  Country: None (occurrence: None)
  Receive Date: 20120326
  Receipt Date: 20120322
  Transmission Date: 20120608
  Serious: No
  Sender: FDA-Public Use
  Company Number: US-BAYER-2012-028988

PATIENT
  Age: 42 Year

DRUGS (1)
  1. GADAVIST [Suspect]
     Indication: ANGIOGRAM PERIPHERAL
     Dosage: 7 ML, ONCE
     Dates: start: 20120320, end: 20120320

REACTIONS (2)
  - PRURITUS [None]
  - URTICARIA [None]
